FAERS Safety Report 5488462-2 (Version None)
Quarter: 2007Q4

REPORT INFORMATION
  Report Type: 
  Country: None (occurrence: None)
  Receive Date: 20071017
  Receipt Date: 20071006
  Transmission Date: 20080405
  Serious: Yes (Hospitalization)
  Sender: FDA-Public Use
  Company Number: JP-JNJFOC-20071003376

PATIENT
  Age: 88 Year
  Sex: Female

DRUGS (10)
  1. LEVOFLOXACIN [Suspect]
     Indication: NASOPHARYNGITIS
     Route: 048
  2. LEVOFLOXACIN [Suspect]
     Indication: RESPIRATORY TRACT INFECTION
     Route: 048
  3. RYTHMODAN [Suspect]
     Indication: DRUG USE FOR UNKNOWN INDICATION
     Route: 065
  4. AMLODIPINE [Concomitant]
     Route: 065
  5. LASIX [Concomitant]
     Route: 065
  6. ONE-ALPHA [Concomitant]
     Route: 065
  7. ZYLORIC [Concomitant]
     Route: 065
  8. MAGNESIUM OXIDE [Concomitant]
     Route: 065
  9. THYRADIN [Concomitant]
     Route: 065
  10. SULPYRINE [Concomitant]
     Route: 065

REACTIONS (3)
  - HYPOGLYCAEMIA [None]
  - LOSS OF CONSCIOUSNESS [None]
  - TETANY [None]
